FAERS Safety Report 13757189 (Version 1)
Quarter: 2017Q3

REPORT INFORMATION
  Report Type: Spontaneous
  Country: US (occurrence: US)
  Receive Date: 20170714
  Receipt Date: 20170714
  Transmission Date: 20171127
  Serious: No
  Sender: FDA-Public Use
  Company Number: None

PATIENT
  Age: 21 Year
  Sex: Female
  Weight: 67.5 kg

DRUGS (10)
  1. SODIUM CHLORIDE. [Concomitant]
     Active Substance: SODIUM CHLORIDE
  2. KETOKONAZOLE [Concomitant]
     Active Substance: KETOCONAZOLE
  3. ARMODAFINIL. [Suspect]
     Active Substance: ARMODAFINIL
     Indication: NARCOLEPSY
     Dosage: ?          OTHER STRENGTH:MG;QUANTITY:30 TABLET(S);?
     Route: 048
     Dates: start: 20170710, end: 20170713
  4. CLINDAMYCIN. [Concomitant]
     Active Substance: CLINDAMYCIN
  5. IRON [Concomitant]
     Active Substance: IRON
  6. VIT-D [Concomitant]
  7. ARMODAFINIL. [Suspect]
     Active Substance: ARMODAFINIL
     Indication: POSTURAL ORTHOSTATIC TACHYCARDIA SYNDROME
     Dosage: ?          OTHER STRENGTH:MG;QUANTITY:30 TABLET(S);?
     Route: 048
     Dates: start: 20170710, end: 20170713
  8. VITAMIN B COMPLEX [Concomitant]
     Active Substance: CYANOCOBALAMIN\DEXPANTHENOL\NIACINAMIDE\PYRIDOXINE HYDROCHLORIDE\RIBOFLAVIN 5^-PHOSPHATE SODIUM\THIAMINE HYDROCHLORIDE\VITAMIN B COMPLEX
  9. ALBUTEROL. [Concomitant]
     Active Substance: ALBUTEROL
  10. EPIDUO FORTE [Concomitant]
     Active Substance: ADAPALENE\BENZOYL PEROXIDE

REACTIONS (8)
  - Drug ineffective [None]
  - Fatigue [None]
  - Nausea [None]
  - Pain [None]
  - Abdominal pain upper [None]
  - Product substitution issue [None]
  - Dry mouth [None]
  - Headache [None]

NARRATIVE: CASE EVENT DATE: 20170713
